FAERS Safety Report 9605123 (Version 2)
Quarter: 2013Q4

REPORT INFORMATION
  Report Type: Report from Study
  Country: US (occurrence: US)
  Receive Date: 20131008
  Receipt Date: 20131125
  Transmission Date: 20140711
  Serious: Yes (Hospitalization)
  Sender: FDA-Public Use
  Company Number: US-ROCHE-1284288

PATIENT
  Sex: Female

DRUGS (1)
  1. AVASTIN [Suspect]
     Indication: CYSTOID MACULAR OEDEMA
     Dosage: TWICE A MONTH IN BOTH EYES
     Route: 050
     Dates: start: 19910714

REACTIONS (5)
  - Diabetes mellitus [Unknown]
  - Hypertension [Unknown]
  - Drug ineffective [Unknown]
  - Vitreous floaters [Unknown]
  - Visual acuity reduced [Unknown]
